FAERS Safety Report 9418808 (Version 1)
Quarter: 2013Q3

REPORT INFORMATION
  Report Type: Spontaneous
  Country: US (occurrence: US)
  Receive Date: 20130725
  Receipt Date: 20130725
  Transmission Date: 20140515
  Serious: No
  Sender: FDA-Public Use
  Company Number: US-PFIZER INC-2013216275

PATIENT
  Age: 73 Year
  Sex: Female
  Weight: 88.44 kg

DRUGS (12)
  1. XELJANZ [Suspect]
     Dosage: 5 MG (1 TABLET), 2X/DAY
  2. XARELTO [Concomitant]
     Dosage: 10 MG
  3. AZATHIOPRINE [Concomitant]
     Dosage: 50 MG
  4. METFORMIN [Concomitant]
     Dosage: 1000 MG
  5. GABAPENTIN [Concomitant]
     Dosage: 300 MG
  6. CITALOPRAM [Concomitant]
     Dosage: 20 MG
  7. VESICARE [Concomitant]
     Dosage: 10 MG
  8. METOPROLOL ER [Concomitant]
     Dosage: 50 MG
  9. ZOLPIDEM [Concomitant]
     Dosage: 5 MG
  10. OMEPRAZOLE [Concomitant]
     Dosage: 20.6 MGDR
  11. CALCIUM WITH VITAMIN D [Concomitant]
     Dosage: UNK
  12. OXYCODONE [Concomitant]
     Dosage: 5 MG

REACTIONS (1)
  - Constipation [Recovered/Resolved]
